FAERS Safety Report 9144665 (Version 1)
Quarter: 2013Q1

REPORT INFORMATION
  Report Type: Spontaneous
  Country: IN (occurrence: IN)
  Receive Date: 20130306
  Receipt Date: 20130306
  Transmission Date: 20140127
  Serious: Yes (Death)
  Sender: FDA-Public Use
  Company Number: IN-MERCK-1303IND000995

PATIENT
  Age: 56 Year
  Sex: 0

DRUGS (1)
  1. JANUMET [Suspect]
     Dosage: 1 DF, QD
     Route: 048

REACTIONS (3)
  - Cerebrovascular accident [Fatal]
  - Renal disorder [Unknown]
  - Inappropriate schedule of drug administration [Unknown]
